FAERS Safety Report 12194167 (Version 6)
Quarter: 2016Q4

REPORT INFORMATION
  Report Type: Spontaneous
  Country: US (occurrence: US)
  Receive Date: 20160321
  Receipt Date: 20161220
  Transmission Date: 20170207
  Serious: Yes (Hospitalization, Congenital Anomaly, Other)
  Sender: FDA-Public Use
  Company Number: PHEH2016US006492

PATIENT
  Sex: Female

DRUGS (4)
  1. ZOFRAN [Suspect]
     Active Substance: ONDANSETRON HYDROCHLORIDE
     Indication: FOETAL EXPOSURE DURING PREGNANCY
     Dosage: MOTHER DOSE: 8 MG, QD
     Route: 064
  2. PROMETHAZINE [Concomitant]
     Active Substance: PROMETHAZINE\PROMETHAZINE HYDROCHLORIDE
     Indication: PRODUCT USED FOR UNKNOWN INDICATION
     Route: 064
  3. PREMESIS [Concomitant]
     Indication: PRODUCT USED FOR UNKNOWN INDICATION
     Route: 064
  4. NITROFURANTOIN. [Concomitant]
     Active Substance: NITROFURANTOIN
     Indication: PRODUCT USED FOR UNKNOWN INDICATION
     Route: 064

REACTIONS (23)
  - Diplegia [Unknown]
  - Anhedonia [Unknown]
  - Cerebral palsy [Unknown]
  - Foetal exposure during pregnancy [Unknown]
  - Premature menarche [Unknown]
  - Periventricular leukomalacia [Unknown]
  - Speech disorder [Unknown]
  - Emotional distress [Unknown]
  - Muscle contracture [Unknown]
  - Injury [Unknown]
  - Cystic fibrosis [Unknown]
  - Cerebral ventricle dilatation [Unknown]
  - Intellectual disability [Unknown]
  - Anxiety [Unknown]
  - Congenital anomaly [Unknown]
  - Hypertonia neonatal [Unknown]
  - Gait disturbance [Unknown]
  - Respiratory syncytial virus infection [Unknown]
  - Encephalomalacia [Unknown]
  - Pain [Unknown]
  - Developmental delay [Unknown]
  - Atrial septal defect [Unknown]
  - Cerebral disorder [Unknown]
